FAERS Safety Report 18542764 (Version 1)
Quarter: 2020Q4

REPORT INFORMATION
  Report Type: Report from Study
  Country: US (occurrence: US)
  Receive Date: 20201124
  Receipt Date: 20201124
  Transmission Date: 20210114
  Serious: Yes (Hospitalization)
  Sender: FDA-Public Use
  Company Number: US-CHIESI-2020CHF05531

PATIENT
  Age: 15 Year
  Sex: Male
  Weight: 36 kg

DRUGS (5)
  1. DEFERIPRONE [Suspect]
     Active Substance: DEFERIPRONE
     Indication: HAEMOCHROMATOSIS
  2. DEFERIPRONE [Suspect]
     Active Substance: DEFERIPRONE
     Indication: THALASSAEMIA BETA
     Dosage: 28 MILLIGRAM/KILOGRAM, TID
     Route: 048
     Dates: start: 20200407, end: 2020
  3. DEFEROXAMINE [Concomitant]
     Active Substance: DEFEROXAMINE MESYLATE
     Indication: PRODUCT USED FOR UNKNOWN INDICATION
     Dosage: UNK
     Route: 065
  4. VITAMIN D [Concomitant]
     Active Substance: VITAMIN D NOS
     Indication: PRODUCT USED FOR UNKNOWN INDICATION
     Dosage: UNK
     Route: 065
  5. FOLIC ACID. [Concomitant]
     Active Substance: FOLIC ACID
     Indication: PRODUCT USED FOR UNKNOWN INDICATION
     Dosage: UNK
     Route: 065

REACTIONS (1)
  - Cardiac iron overload [Recovering/Resolving]

NARRATIVE: CASE EVENT DATE: 20201030
